FAERS Safety Report 10333215 (Version 2)
Quarter: 2014Q3

REPORT INFORMATION
  Report Type: Report from Study
  Country: US (occurrence: US)
  Receive Date: 20140722
  Receipt Date: 20140722
  Transmission Date: 20150326
  Serious: Yes (Hospitalization, Other)
  Sender: FDA-Public Use
  Company Number: US-ABBVIE-14P-163-1228344-00

PATIENT
  Age: 32 Year
  Sex: Female

DRUGS (9)
  1. DOXYCYCLINE. [Suspect]
     Active Substance: DOXYCYCLINE
     Indication: PRODUCT USED FOR UNKNOWN INDICATION
  2. INSULIN [Concomitant]
     Active Substance: INSULIN NOS
     Indication: PRODUCT USED FOR UNKNOWN INDICATION
  3. NORETHINDRONE. [Concomitant]
     Active Substance: NORETHINDRONE
     Indication: ENDOMETRIOSIS
  4. METOPROLOL [Concomitant]
     Active Substance: METOPROLOL
     Indication: PRODUCT USED FOR UNKNOWN INDICATION
  5. LUPRON DEPOT [Suspect]
     Active Substance: LEUPROLIDE ACETATE
     Dates: start: 201401
  6. LUPRON DEPOT [Suspect]
     Active Substance: LEUPROLIDE ACETATE
     Indication: ENDOMETRIOSIS
     Dates: start: 2010, end: 2012
  7. LAMICTAL [Concomitant]
     Active Substance: LAMOTRIGINE
     Indication: PRODUCT USED FOR UNKNOWN INDICATION
  8. LUPRON DEPOT [Suspect]
     Active Substance: LEUPROLIDE ACETATE
     Dates: start: 20140407, end: 20140407
  9. LUPRON DEPOT [Suspect]
     Active Substance: LEUPROLIDE ACETATE
     Indication: ENDOMETRIOSIS
     Dates: start: 201311

REACTIONS (26)
  - Depression [Recovering/Resolving]
  - Alopecia [Unknown]
  - Dyspareunia [Not Recovered/Not Resolved]
  - Back pain [Unknown]
  - Bronchitis [Recovered/Resolved]
  - Uterine pain [Not Recovered/Not Resolved]
  - Abdominal distension [Not Recovered/Not Resolved]
  - Staphylococcal infection [Not Recovered/Not Resolved]
  - Blood glucose abnormal [Recovered/Resolved]
  - Crying [Unknown]
  - Discomfort [Not Recovered/Not Resolved]
  - Back pain [Unknown]
  - Vaginal infection [Unknown]
  - Suicidal ideation [Recovered/Resolved]
  - Vaginal haemorrhage [Unknown]
  - Blood calcium decreased [Unknown]
  - Uterine spasm [Not Recovered/Not Resolved]
  - Crying [Recovered/Resolved]
  - Uterine pain [Not Recovered/Not Resolved]
  - Hot flush [Unknown]
  - Agitation [Recovered/Resolved]
  - Rash papular [Unknown]
  - Uterine spasm [Not Recovered/Not Resolved]
  - Bipolar disorder [Recovering/Resolving]
  - Vaginal haemorrhage [Not Recovered/Not Resolved]
  - Fungal infection [Not Recovered/Not Resolved]

NARRATIVE: CASE EVENT DATE: 2010
